FAERS Safety Report 9787508 (Version 2)
Quarter: 2014Q1

REPORT INFORMATION
  Report Type: Spontaneous
  Country: US (occurrence: None)
  Receive Date: 20131224
  Receipt Date: 20140129
  Transmission Date: 20141002
  Serious: Yes (Hospitalization, Other)
  Sender: FDA-Public Use
  Company Number: 2013-US-004686

PATIENT
  Age: 57 Year
  Sex: Female

DRUGS (1)
  1. XYREM [Suspect]
     Indication: SOMNOLENCE
     Route: 048
     Dates: start: 201209, end: 2012

REACTIONS (3)
  - Schizophrenia [None]
  - Drug abuse [None]
  - Unresponsive to stimuli [None]
